FAERS Safety Report 8105113-9 (Version None)
Quarter: 2012Q1

REPORT INFORMATION
  Report Type: 
  Country: None (occurrence: None)
  Receive Date: 20120130
  Receipt Date: 20120118
  Transmission Date: 20120608
  Serious: Yes (Hospitalization)
  Sender: FDA-Public Use
  Company Number: 1169503

PATIENT
  Age: 73 Year
  Sex: Female

DRUGS (4)
  1. OXALIPLATIN [Suspect]
     Indication: GASTRIC CANCER
     Dosage: 209 MG MILLIGRAM(S), INTRAVENOUS
     Route: 042
     Dates: start: 20120111, end: 20120111
  2. CETIRIZINE HCL [Concomitant]
  3. BETAMETHASONE SODIUM PHOSPHATE [Concomitant]
  4. ZANTAC [Concomitant]

REACTIONS (1)
  - LARYNGOSPASM [None]
